FAERS Safety Report 18547970 (Version 2)
Quarter: 2020Q4

REPORT INFORMATION
  Report Type: Spontaneous
  Country: US (occurrence: US)
  Receive Date: 20201125
  Receipt Date: 20201130
  Transmission Date: 20210114
  Serious: Yes (Hospitalization, Other)
  Sender: FDA-Public Use
  Company Number: US-PFIZER INC-2019209440

PATIENT
  Age: 58 Year
  Sex: Female
  Weight: 43.09 kg

DRUGS (8)
  1. RAPAMUNE [Suspect]
     Active Substance: SIROLIMUS
     Dosage: 1.5 MG, DAILY
     Route: 048
     Dates: start: 202011
  2. RAPAMUNE [Suspect]
     Active Substance: SIROLIMUS
     Dosage: 6 MG, DAILY
     Route: 048
  3. RAPAMUNE [Suspect]
     Active Substance: SIROLIMUS
     Dosage: 4 MG, DAILY
     Route: 048
     Dates: start: 20190531
  4. RAPAMUNE [Suspect]
     Active Substance: SIROLIMUS
     Indication: PROPHYLAXIS AGAINST TRANSPLANT REJECTION
     Dosage: 4 MG, DAILY
     Route: 048
     Dates: start: 201903
  5. RAPAMUNE [Suspect]
     Active Substance: SIROLIMUS
     Dosage: 5 MG, DAILY
     Route: 048
     Dates: start: 20190708
  6. RAPAMUNE [Suspect]
     Active Substance: SIROLIMUS
     Dosage: 2 MG, DAILY (TAKE 2 TABLETS (2 MG TOTAL) BY MOUTH DAILY)
     Route: 048
  7. RAPAMUNE [Suspect]
     Active Substance: SIROLIMUS
     Indication: LUNG TRANSPLANT
     Dosage: 3 MG, DAILY (TAKE 3 TABLETS BY MOUTH DAILY)
     Route: 048
     Dates: start: 20190507
  8. RAPAMUNE [Suspect]
     Active Substance: SIROLIMUS
     Dosage: 5 MG, DAILY
     Route: 048
     Dates: start: 201905

REACTIONS (5)
  - Underdose [Unknown]
  - Product use in unapproved indication [Unknown]
  - Pneumonia [Recovering/Resolving]
  - Off label use [Unknown]
  - Product dispensing error [Unknown]

NARRATIVE: CASE EVENT DATE: 201905
